FAERS Safety Report 7693744-X (Version None)
Quarter: 2011Q3

REPORT INFORMATION
  Report Type: 
  Country: None (occurrence: None)
  Receive Date: 20110819
  Receipt Date: 20110805
  Transmission Date: 20111222
  Serious: Yes (Death, Hospitalization)
  Sender: FDA-Public Use
  Company Number: FR-ROCHE-797157

PATIENT
  Sex: Male
  Weight: 55 kg

DRUGS (11)
  1. CISPLATIN [Suspect]
     Indication: NON-SMALL CELL LUNG CANCER
     Route: 042
     Dates: start: 20110214, end: 20110307
  2. CISPLATIN [Suspect]
     Route: 042
     Dates: end: 20110408
  3. PEMETREXED [Suspect]
     Route: 042
     Dates: end: 20110408
  4. POTASSIUM CHLORIDE [Concomitant]
     Dosage: FREQUENCY: 1 GL/JR
     Dates: start: 20110214
  5. OXYCODONE HCL [Concomitant]
     Dosage: FREQUENCY: 1 CP/HH
     Dates: start: 20110214
  6. BEVACIZUMAB [Suspect]
     Indication: NON-SMALL CELL LUNG CANCER
     Dosage: FREQUENCY: 3 WEEK SEM
     Route: 042
     Dates: start: 20110214, end: 20110307
  7. SOLUDECADRON [Concomitant]
     Dosage: FREQUENCY: 20 MG
  8. FOLIC ACID [Concomitant]
     Indication: PREMEDICATION
     Dosage: FREQUENCY: 1 CP/JR
  9. ROCEPHIN [Concomitant]
  10. LEXOMYL [Concomitant]
     Dosage: DOSE: 1/4 CP FREQUENCY: 3 PAI/IC
     Dates: start: 20110214
  11. PEMETREXED [Suspect]
     Indication: NON-SMALL CELL LUNG CANCER
     Route: 042
     Dates: start: 20110214, end: 20110307

REACTIONS (3)
  - FEBRILE BONE MARROW APLASIA [None]
  - GENERAL PHYSICAL HEALTH DETERIORATION [None]
  - RESPIRATORY FAILURE [None]
